FAERS Safety Report 16315673 (Version 2)
Quarter: 2019Q2

REPORT INFORMATION
  Report Type: Report from Study
  Country: US (occurrence: US)
  Receive Date: 20190515
  Receipt Date: 20190603
  Transmission Date: 20190711
  Serious: Yes (Hospitalization)
  Sender: FDA-Public Use
  Company Number: PHHO2019US004633

PATIENT

DRUGS (13)
  1. METHOTREXATE. [Suspect]
     Active Substance: METHOTREXATE
     Dosage: 13.75 MILLIGRAM, WEEKLY
     Route: 048
     Dates: start: 20190116, end: 20190418
  2. SULFAMETHOXAZOLE AND TRIMETHOPRIM [Concomitant]
     Active Substance: SULFAMETHOXAZOLE\TRIMETHOPRIM
     Indication: ANTIFUNGAL PROPHYLAXIS
     Dosage: 40 MG, BID (SAT/SUN)
     Route: 048
     Dates: start: 20171014
  3. INC424A [Suspect]
     Active Substance: RUXOLITINIB
     Indication: ACUTE LYMPHOCYTIC LEUKAEMIA
     Dosage: 35 MG, BID
     Route: 048
     Dates: start: 20190123, end: 20190418
  4. MERCAPTOPURINE. [Suspect]
     Active Substance: MERCAPTOPURINE
     Indication: ACUTE LYMPHOCYTIC LEUKAEMIA
     Dosage: 50 MG, QHS
     Route: 048
     Dates: start: 20181024, end: 20190418
  5. MERCAPTOPURINE. [Suspect]
     Active Substance: MERCAPTOPURINE
     Dosage: 50 MG, QHS
     Route: 048
     Dates: start: 20190501
  6. MERCAPTOPURINE. [Suspect]
     Active Substance: MERCAPTOPURINE
     Dosage: 50 MILLIGRAM, QHS
     Route: 048
     Dates: start: 20181024, end: 20190418
  7. PREDNISONE. [Concomitant]
     Active Substance: PREDNISONE
     Indication: ACUTE LYMPHOCYTIC LEUKAEMIA
     Dosage: 12.5 MG, BID
     Route: 048
     Dates: start: 20181024
  8. MERCAPTOPURINE. [Suspect]
     Active Substance: MERCAPTOPURINE
     Dosage: 50 MILLIGRAM, QHS
     Route: 048
     Dates: start: 20190501
  9. METHOTREXATE. [Suspect]
     Active Substance: METHOTREXATE
     Indication: ACUTE LYMPHOCYTIC LEUKAEMIA
     Dosage: 12 MG, ONCE/SINGLE
     Route: 037
     Dates: start: 20181024, end: 20190410
  10. METHOTREXATE. [Suspect]
     Active Substance: METHOTREXATE
     Dosage: 13.75 MG, QW
     Route: 048
     Dates: start: 20190116, end: 20190418
  11. METHOTREXATE. [Suspect]
     Active Substance: METHOTREXATE
     Dosage: 13.75 MILLIGRAM, WEEKLY
     Route: 048
     Dates: start: 20190501
  12. METHOTREXATE. [Suspect]
     Active Substance: METHOTREXATE
     Dosage: 12 MILLIGRAM, ONCE
     Route: 037
     Dates: start: 20181024, end: 20190410
  13. METHOTREXATE. [Suspect]
     Active Substance: METHOTREXATE
     Dosage: 13.75 MG, QW
     Route: 048
     Dates: start: 20190501

REACTIONS (1)
  - Febrile neutropenia [Recovered/Resolved]

NARRATIVE: CASE EVENT DATE: 20190418
